FAERS Safety Report 4948822-2 (Version None)
Quarter: 2006Q1

REPORT INFORMATION
  Report Type: 
  Country: None (occurrence: None)
  Receive Date: 20060321
  Receipt Date: 20060314
  Transmission Date: 20060701
  Serious: Yes (Hospitalization, Other)
  Sender: FDA-Public Use
  Company Number: US-JNJFOC-20060304000

PATIENT
  Age: 57 Year
  Sex: Female

DRUGS (4)
  1. DURAGESIC-100 [Suspect]
     Indication: CANCER PAIN
     Route: 062
  2. MORPHINE [Concomitant]
     Indication: BREAKTHROUGH PAIN
     Route: 048
  3. ATIVAN [Concomitant]
     Indication: ANXIETY
     Route: 048
  4. REGLAN [Concomitant]
     Indication: VOMITING
     Route: 048

REACTIONS (2)
  - DELIRIUM [None]
  - THERAPEUTIC RESPONSE DECREASED [None]
